FAERS Safety Report 4988286-6 (Version None)
Quarter: 2006Q2

REPORT INFORMATION
  Report Type: 
  Country: None (occurrence: None)
  Receive Date: 20060425
  Receipt Date: 20060412
  Transmission Date: 20061013
  Serious: Yes (Life-Threatening, Other)
  Sender: FDA-Public Use
  Company Number: 2006034442

PATIENT
  Age: 54 Year
  Sex: Female

DRUGS (1)
  1. XALATAN [Suspect]
     Indication: GLAUCOMA
     Dosage: 1 DROP, 1 IN 1 D, OPHTHALMIC
     Route: 047
     Dates: start: 20041103

REACTIONS (1)
  - CHOROID MELANOMA [None]
